FAERS Safety Report 23964916 (Version 1)
Quarter: 2024Q2

REPORT INFORMATION
  Report Type: Spontaneous
  Country: US (occurrence: US)
  Receive Date: 20240612
  Receipt Date: 20240612
  Transmission Date: 20240716
  Serious: No
  Sender: FDA-Public Use
  Company Number: None

PATIENT
  Age: 5 Decade
  Sex: Female

DRUGS (7)
  1. CAPECITABINE [Suspect]
     Active Substance: CAPECITABINE
     Indication: Disease progression
  2. CAPECITABINE [Suspect]
     Active Substance: CAPECITABINE
     Indication: Invasive breast carcinoma
  3. CAPECITABINE [Suspect]
     Active Substance: CAPECITABINE
     Indication: Mucinous breast carcinoma
  4. ZOMETA [Concomitant]
     Active Substance: ZOLEDRONIC ACID
     Indication: Supportive care
  5. NERATINIB [Concomitant]
     Active Substance: NERATINIB
     Indication: Disease progression
  6. NERATINIB [Concomitant]
     Active Substance: NERATINIB
     Indication: Invasive breast carcinoma
  7. NERATINIB [Concomitant]
     Active Substance: NERATINIB
     Indication: Mucinous breast carcinoma

REACTIONS (1)
  - Palmar-plantar erythrodysaesthesia syndrome [Recovering/Resolving]
